FAERS Safety Report 10389053 (Version 2)
Quarter: 2014Q3

REPORT INFORMATION
  Report Type: Report from Study
  Country: BR (occurrence: BR)
  Receive Date: 20140816
  Receipt Date: 20140901
  Transmission Date: 20150326
  Serious: Yes (Hospitalization, Other)
  Sender: FDA-Public Use
  Company Number: PHHY2014BR101705

PATIENT
  Age: 64 Year
  Sex: Female
  Weight: 61 kg

DRUGS (2)
  1. VYTORIN [Suspect]
     Active Substance: EZETIMIBE\SIMVASTATIN
     Indication: DYSLIPIDAEMIA
     Dosage: 1 DF (10/20), DAILY
     Route: 048
  2. EXFORGE HCT [Suspect]
     Active Substance: AMLODIPINE BESYLATE\HYDROCHLOROTHIAZIDE\VALSARTAN
     Indication: SYSTOLIC HYPERTENSION
     Dosage: 1 DF (160/5/2.5MG), DAILY
     Route: 048

REACTIONS (19)
  - Hiatus hernia [Unknown]
  - Diastolic dysfunction [Unknown]
  - Cardiac disorder [Unknown]
  - Restrictive pulmonary disease [Recovering/Resolving]
  - Wheezing [Unknown]
  - Emphysema [Unknown]
  - Cough [Recovering/Resolving]
  - Breath sounds abnormal [Recovering/Resolving]
  - Bundle branch block left [Unknown]
  - Blood pressure increased [Unknown]
  - Peripheral venous disease [Unknown]
  - Diabetes mellitus [Unknown]
  - Pulmonary bulla [Unknown]
  - Pulmonary mass [Unknown]
  - Chronic obstructive pulmonary disease [Unknown]
  - Dyspnoea [Recovering/Resolving]
  - Lung cyst [Unknown]
  - Systolic hypertension [Unknown]
  - Bronchiectasis [Unknown]

NARRATIVE: CASE EVENT DATE: 20140110
